FAERS Safety Report 8212155-1 (Version None)
Quarter: 2012Q1

REPORT INFORMATION
  Report Type: 
  Country: None (occurrence: None)
  Receive Date: 20120315
  Receipt Date: 20120312
  Transmission Date: 20120608
  Serious: Yes (Death, Life-Threatening, Other)
  Sender: FDA-Public Use
  Company Number: PHHY2009CA12351

PATIENT
  Sex: Male

DRUGS (7)
  1. PREDNISONE TAB [Concomitant]
     Dosage: 100 MG DAYS 1-5 OF CHEMO
  2. CHEMOTHERAPEUTICS NOS [Concomitant]
  3. CYCLOPHOSPHAMIDE [Concomitant]
     Dosage: 1620 MG,
  4. ALLOPURINOL [Concomitant]
     Dosage: 300 MG,
  5. VINCRISTINE [Concomitant]
     Dosage: 1 MG, Q2/DAYS
  6. CLOZARIL [Suspect]
     Indication: SCHIZOPHRENIA
     Dosage: 200 MG, DAILY
     Route: 048
     Dates: start: 19931101
  7. DOLASETRON [Concomitant]
     Dosage: 100 MG 1-3 DAYS OF CHEMO

REACTIONS (5)
  - NEOPLASM MALIGNANT [None]
  - NON-HODGKIN'S LYMPHOMA [None]
  - WHITE BLOOD CELL COUNT DECREASED [None]
  - NEUTROPHIL COUNT DECREASED [None]
  - LYMPHOMA [None]
